FAERS Safety Report 7653207-4 (Version None)
Quarter: 2011Q3

REPORT INFORMATION
  Report Type: 
  Country: None (occurrence: None)
  Receive Date: 20110728
  Receipt Date: 20110718
  Transmission Date: 20111222
  Serious: Yes (Hospitalization, Other)
  Sender: FDA-Public Use
  Company Number: 119993

PATIENT
  Age: 51 Year
  Sex: Female

DRUGS (1)
  1. DIPYRIDAMOLE [Suspect]
     Dosage: 200MG (60 EXTENDED RELEASE TABLETS)

REACTIONS (12)
  - SOMNOLENCE [None]
  - PLATELET AGGREGATION ABNORMAL [None]
  - MULTIPLE DRUG OVERDOSE INTENTIONAL [None]
  - SUICIDE ATTEMPT [None]
  - MEDICATION ERROR [None]
  - LOSS OF CONSCIOUSNESS [None]
  - CHEST PAIN [None]
  - BLOOD PRESSURE DIASTOLIC DECREASED [None]
  - VOMITING [None]
  - TOXICITY TO VARIOUS AGENTS [None]
  - HEADACHE [None]
  - ATRIOVENTRICULAR BLOCK FIRST DEGREE [None]
